FAERS Safety Report 9362402 (Version 1)
Quarter: 2013Q2

REPORT INFORMATION
  Report Type: Spontaneous
  Country: US (occurrence: US)
  Receive Date: 20130622
  Receipt Date: 20130622
  Transmission Date: 20140414
  Serious: Yes (Hospitalization)
  Sender: FDA-Public Use
  Company Number: US-US-EMD SERONO, INC.-7065440

PATIENT
  Age: 32 Year
  Sex: Male
  Weight: 81 kg

DRUGS (4)
  1. REBIF [Suspect]
     Indication: RELAPSING-REMITTING MULTIPLE SCLEROSIS
     Route: 058
     Dates: start: 201102, end: 201202
  2. CELEXA                             /00582602/ [Concomitant]
     Indication: MULTIPLE SCLEROSIS
     Dates: start: 201102
  3. BACLOFEN [Concomitant]
     Indication: MULTIPLE SCLEROSIS
     Dates: start: 201102
  4. VITAMIN D                          /00107901/ [Concomitant]
     Indication: MULTIPLE SCLEROSIS
     Dates: start: 201102

REACTIONS (6)
  - Multiple sclerosis relapse [Recovered/Resolved]
  - Cognitive disorder [Not Recovered/Not Resolved]
  - Judgement impaired [Not Recovered/Not Resolved]
  - Mood swings [Not Recovered/Not Resolved]
  - Anxiety [Not Recovered/Not Resolved]
  - Progressive multiple sclerosis [Not Recovered/Not Resolved]
